FAERS Safety Report 7767597-5 (Version None)
Quarter: 2011Q3

REPORT INFORMATION
  Report Type: 
  Country: None (occurrence: None)
  Receive Date: 20110922
  Receipt Date: 20110913
  Transmission Date: 20111222
  Serious: Yes (Hospitalization)
  Sender: FDA-Public Use
  Company Number: US-BAYER-201036664NA

PATIENT
  Age: 52 Year
  Sex: Female
  Weight: 68.934 kg

DRUGS (11)
  1. PROPOXYPHENE NAPSYLATE W/ ACETAMINOPHEN [Concomitant]
     Indication: PAIN
     Dosage: UNK
     Dates: start: 20030101
  2. PROMETHAZINE [Concomitant]
  3. MAXALT [Concomitant]
     Indication: MIGRAINE
     Dosage: UNK
     Dates: start: 20030101
  4. LISINOPRIL [Concomitant]
     Indication: HYPERTENSION
     Dosage: UNK
     Dates: start: 20090101
  5. DROSPIRENONE AND ETHINYL ESTRADIOL [Suspect]
  6. YASMIN [Suspect]
     Indication: MENSTRUATION IRREGULAR
     Route: 048
     Dates: start: 20030401
  7. OXYCODONE HCL AND ACETAMINOPHEN [Concomitant]
  8. TRIAMTERENE AND HYDROCHLOROTHIAZIDE [Concomitant]
     Indication: HYPERTENSION
     Dosage: UNK
     Dates: start: 20030101
  9. CELEBREX [Concomitant]
     Indication: PAIN
     Dosage: UNK
     Dates: start: 20030101
  10. VITAMIN D [Concomitant]
     Dosage: UNK UNK, QD
  11. YASMIN [Suspect]
     Indication: CONTRACEPTION

REACTIONS (2)
  - PULMONARY EMBOLISM [None]
  - DEEP VEIN THROMBOSIS [None]
